FAERS Safety Report 7218017-0 (Version None)
Quarter: 2011Q1

REPORT INFORMATION
  Report Type: 
  Country: None (occurrence: None)
  Receive Date: 20110110
  Receipt Date: 20110104
  Transmission Date: 20110831
  Serious: Yes (Death, Other)
  Sender: FDA-Public Use
  Company Number: US-PERRIGO-11US000049

PATIENT
  Sex: Male
  Weight: 8.934 kg

DRUGS (6)
  1. INFANT FORMULAS [Suspect]
     Indication: NUTRITIONAL SUPPORT
     Dosage: UNK
     Route: 048
     Dates: end: 20101217
  2. PENTACEL [Suspect]
     Indication: IMMUNISATION
     Dosage: UNK,IM
     Route: 065
     Dates: start: 20101216, end: 20101216
  3. BABY FOOD [Suspect]
     Indication: NUTRITIONAL SUPPORT
     Dosage: UNK
     Route: 048
     Dates: end: 20101217
  4. ROTAVIRUS VACCINE [Suspect]
     Indication: IMMUNISATION
     Dosage: UNK
     Route: 048
     Dates: start: 20101216, end: 20101216
  5. PREVNAR [Suspect]
     Indication: IMMUNISATION
     Dosage: UNK,IM
     Route: 065
     Dates: start: 20101216, end: 20101216
  6. ACETAMINOPHEN [Suspect]
     Indication: IRRITABILITY
     Dosage: 80MG, SINGLE
     Route: 048
     Dates: start: 20101217, end: 20101217

REACTIONS (6)
  - OFF LABEL USE [None]
  - BLOOD PRESSURE IMMEASURABLE [None]
  - CARDIAC ARREST [None]
  - CYANOSIS [None]
  - DYSPNOEA [None]
  - PULSE ABNORMAL [None]
